FAERS Safety Report 6057844-2 (Version None)
Quarter: 2009Q1

REPORT INFORMATION
  Report Type: 
  Country: None (occurrence: None)
  Receive Date: 20090129
  Receipt Date: 20090119
  Transmission Date: 20090719
  Serious: Yes (Hospitalization, Disabling, Other)
  Sender: FDA-Public Use
  Company Number: US-ELI_LILLY_AND_COMPANY-US200901003260

PATIENT
  Sex: Female

DRUGS (2)
  1. ZYPREXA [Suspect]
     Dosage: 5 MG, UNK
     Dates: start: 20000101, end: 20071101
  2. ZYPREXA [Suspect]
     Dosage: 7.5 MG, UNK

REACTIONS (9)
  - ACTIVITIES OF DAILY LIVING IMPAIRED [None]
  - ASTHENIA [None]
  - BLOOD CHOLESTEROL INCREASED [None]
  - LIPIDS INCREASED [None]
  - LOSS OF CONSCIOUSNESS [None]
  - OBESITY [None]
  - PAIN [None]
  - THROMBOCYTOPENIC PURPURA [None]
  - WEIGHT INCREASED [None]
